FAERS Safety Report 16519523 (Version 1)
Quarter: 2019Q3

REPORT INFORMATION
  Report Type: Report from Study
  Country: US (occurrence: US)
  Receive Date: 20190702
  Receipt Date: 20190702
  Transmission Date: 20191004
  Serious: Yes (Hospitalization)
  Sender: FDA-Public Use
  Company Number: US-JNJFOC-20180633289

PATIENT
  Sex: Female

DRUGS (1)
  1. IMBRUVICA [Suspect]
     Active Substance: IBRUTINIB
     Indication: CHRONIC LYMPHOCYTIC LEUKAEMIA
     Route: 048
     Dates: start: 20180508

REACTIONS (6)
  - Fatigue [Unknown]
  - Stress [Unknown]
  - Eye haemorrhage [Unknown]
  - Swelling [Unknown]
  - White blood cell count decreased [Unknown]
  - Hypertension [Recovering/Resolving]
